FAERS Safety Report 6675555-7 (Version None)
Quarter: 2010Q2

REPORT INFORMATION
  Report Type: 
  Country: None (occurrence: None)
  Receive Date: 20100409
  Receipt Date: 20100405
  Transmission Date: 20101027
  Serious: Yes (Hospitalization)
  Sender: FDA-Public Use
  Company Number: US-GILEAD-2010-0028256

PATIENT
  Sex: Female
  Weight: 67.192 kg

DRUGS (11)
  1. LETAIRIS [Suspect]
     Indication: PULMONARY ARTERIAL HYPERTENSION
     Route: 048
     Dates: start: 20100105
  2. ASPIRIN [Concomitant]
  3. FUROSEMIDE [Concomitant]
  4. COZAAR [Concomitant]
  5. ATENOLOL [Concomitant]
  6. METFORMIN HCL [Concomitant]
  7. FOSAMAX [Concomitant]
  8. LOVASTATIN [Concomitant]
  9. SERTRALINE HCL [Concomitant]
  10. FOLIC ACID [Concomitant]
  11. FISH OIL [Concomitant]

REACTIONS (1)
  - CARDIAC FAILURE CONGESTIVE [None]
